FAERS Safety Report 10455466 (Version 3)
Quarter: 2015Q2

REPORT INFORMATION
  Report Type: Spontaneous
  Country: FR (occurrence: FR)
  Receive Date: 20140916
  Receipt Date: 20150626
  Transmission Date: 20150821
  Serious: Yes (Death, Hospitalization, Other)
  Sender: FDA-Public Use
  Company Number: FR-AMGEN-FRASP2014069512

PATIENT
  Age: 60 Year
  Sex: Female

DRUGS (1)
  1. ARANESP [Suspect]
     Active Substance: DARBEPOETIN ALFA
     Indication: NORMOCHROMIC NORMOCYTIC ANAEMIA
     Dosage: 40 MUG, EVERY 15 DAYS
     Route: 065
     Dates: start: 20140214, end: 20140519

REACTIONS (14)
  - Diabetes mellitus [Unknown]
  - Bedridden [Unknown]
  - Anal stenosis [Unknown]
  - Obesity [Unknown]
  - Lymphoedema [Unknown]
  - Cerebrovascular accident [Fatal]
  - Generalised tonic-clonic seizure [Unknown]
  - Seizure [Unknown]
  - Depressed level of consciousness [Unknown]
  - Ischaemic stroke [Fatal]
  - General physical health deterioration [Unknown]
  - Haemorrhoids [Unknown]
  - Epilepsy [Unknown]
  - Hypertension [Unknown]

NARRATIVE: CASE EVENT DATE: 2014
